FAERS Safety Report 21175360 (Version 1)
Quarter: 2022Q3

REPORT INFORMATION
  Report Type: Report from Study
  Country: US (occurrence: US)
  Receive Date: 20220805
  Receipt Date: 20220805
  Transmission Date: 20221027
  Serious: Yes (Hospitalization)
  Sender: FDA-Public Use
  Company Number: US-GBT-014846

PATIENT
  Age: 19 Year
  Sex: Female

DRUGS (21)
  1. OXBRYTA [Suspect]
     Active Substance: VOXELOTOR
     Indication: Sickle cell anaemia with crisis
     Route: 048
     Dates: start: 20191227, end: 20200102
  2. HYDROXYUREA [Concomitant]
     Active Substance: HYDROXYUREA
     Indication: Sickle cell disease
     Route: 048
     Dates: start: 20180928
  3. penicillin V potassium (veetid) [Concomitant]
     Route: 048
     Dates: start: 20190301, end: 20211030
  4. MOTRIN [Concomitant]
     Active Substance: IBUPROFEN
     Indication: Sickle cell disease
     Route: 048
     Dates: start: 20181218
  5. CLEOCIN [Concomitant]
     Active Substance: CLINDAMYCIN PHOSPHATE
     Indication: Swelling
     Route: 048
     Dates: start: 20200103, end: 20200501
  6. nortriptaline (pamelor) [Concomitant]
     Indication: Pain
     Dosage: EVERY NIGHT
     Route: 048
     Dates: start: 20180928, end: 20200501
  7. montelukast (singular) [Concomitant]
     Indication: Asthma
     Dosage: EVERY NIGHT
     Route: 048
     Dates: start: 20180928, end: 20211103
  8. CYCLOBENZAPRINE [Concomitant]
     Active Substance: CYCLOBENZAPRINE
     Indication: Muscle spasms
     Route: 048
     Dates: start: 20181210
  9. fluticasone (flovent HFA) [Concomitant]
     Indication: Asthma
     Dosage: 50 MCG/ACTUATION EVERY DAY
     Route: 055
     Dates: start: 20190503
  10. fluticasone (flovent HFA) [Concomitant]
     Indication: Asthma
     Dosage: 110 MCG/ACUATION EVERY DAY
     Route: 055
     Dates: start: 20200211
  11. LEVAQUIN [Concomitant]
     Active Substance: LEVOFLOXACIN
     Indication: Burkholderia cepacia complex infection
     Route: 048
     Dates: start: 20161116, end: 20200501
  12. PRIVIGEN [Concomitant]
     Active Substance: HUMAN IMMUNOGLOBULIN G
     Indication: Immunodeficiency common variable
     Dosage: ONCE
     Route: 042
     Dates: start: 20200110, end: 20200110
  13. methadone (dolopine) [Concomitant]
     Indication: Sickle cell disease
     Route: 048
     Dates: start: 20180928
  14. VITAMIN D3 [Concomitant]
     Active Substance: CHOLECALCIFEROL
     Indication: Sickle cell disease
     Route: 048
     Dates: start: 20180928
  15. GAMUNEX-C [Concomitant]
     Active Substance: HUMAN IMMUNOGLOBULIN G
     Indication: Immunodeficiency common variable
     Dosage: ONCE
     Route: 048
     Dates: start: 20200131, end: 20200131
  16. ondancetron (zofran) [Concomitant]
     Indication: Vomiting
     Route: 042
     Dates: start: 20200103, end: 20200113
  17. lanso prazole (pevacid solutab) [Concomitant]
     Indication: Gastritis
     Route: 048
     Dates: start: 20180413
  18. polythylene glycol (miralax) [Concomitant]
     Indication: Constipation
     Route: 048
     Dates: start: 20171129, end: 20210228
  19. penicillin v potassium (veetid) [Concomitant]
     Route: 048
     Dates: start: 20150211, end: 20190301
  20. hydromorphine (dilaudid) [Concomitant]
     Indication: Sickle cell disease
     Route: 048
     Dates: start: 20180928
  21. TYLENOL [Concomitant]
     Active Substance: ACETAMINOPHEN
     Indication: Sickle cell disease
     Route: 048
     Dates: start: 20161011

REACTIONS (2)
  - Sickle cell anaemia with crisis [Recovered/Resolved]
  - Epstein-Barr virus test positive [Recovered/Resolved]

NARRATIVE: CASE EVENT DATE: 20200103
